FAERS Safety Report 4314252-X (Version None)
Quarter: 2004Q1

REPORT INFORMATION
  Report Type: 
  Country: None (occurrence: None)
  Receive Date: 20040309
  Receipt Date: 20040309
  Transmission Date: 20041129
  Serious: Yes (Hospitalization, Disabling)
  Sender: FDA-Public Use
  Company Number: None

PATIENT
  Sex: Male
  Weight: 54.4316 kg

DRUGS (3)
  1. RESPIRIDONE 1 MG TAB JANSSEN PHARMACEUTICALS [Suspect]
     Indication: ANXIETY
     Dosage: 1 MG DAILY ORAL
     Route: 048
  2. RESPIRIDONE 1 MG TAB JANSSEN PHARMACEUTICALS [Suspect]
     Indication: ASPERGER'S DISORDER
     Dosage: 1 MG DAILY ORAL
     Route: 048
  3. TRAZODONE HCL [Concomitant]

REACTIONS (2)
  - DIABETES MELLITUS [None]
  - DIABETIC KETOACIDOSIS [None]
